FAERS Safety Report 11287856 (Version 1)
Quarter: 2015Q3

REPORT INFORMATION
  Report Type: Spontaneous
  Country: US (occurrence: US)
  Receive Date: 20150721
  Receipt Date: 20150721
  Transmission Date: 20151125
  Serious: No
  Sender: FDA-Public Use
  Company Number: US-UNITED THERAPEUTICS-UNT-2015-001611

PATIENT
  Age: 62 Year
  Sex: Female
  Weight: 99.77 kg

DRUGS (2)
  1. ADCIRCA [Concomitant]
     Active Substance: TADALAFIL
     Indication: PRODUCT USED FOR UNKNOWN INDICATION
  2. REMODULIN [Suspect]
     Active Substance: TREPROSTINIL
     Indication: PULMONARY HYPERTENSION
     Dosage: 0.042 ?G/KG/MIN, CONTINUING
     Route: 058
     Dates: start: 20101217

REACTIONS (6)
  - Infusion site erythema [Unknown]
  - Drug dose omission [Unknown]
  - Infusion site reaction [Recovering/Resolving]
  - Infusion site nodule [Not Recovered/Not Resolved]
  - Device dislocation [Unknown]
  - Infusion site pain [Unknown]

NARRATIVE: CASE EVENT DATE: 201502
